FAERS Safety Report 25754833 (Version 3)
Quarter: 2025Q4

REPORT INFORMATION
  Report Type: Spontaneous
  Country: EU (occurrence: EU)
  Receive Date: 20250903
  Receipt Date: 20251010
  Transmission Date: 20260117
  Serious: Yes (Hospitalization, Other)
  Sender: JOHNSON AND JOHNSON
  Company Number: EU-JNJFOC-20250902680

PATIENT
  Age: 87 Year
  Sex: Female

DRUGS (2)
  1. TOLODODEKIN ALFA [Suspect]
     Active Substance: TOLODODEKIN ALFA
     Indication: Plasma cell myeloma
     Dosage: UNK
  2. LENALIDOMIDE [Suspect]
     Active Substance: LENALIDOMIDE
     Indication: Plasma cell myeloma
     Dosage: UNK

REACTIONS (7)
  - Cardiotoxicity [Recovering/Resolving]
  - Hypocalcaemia [Recovered/Resolved]
  - Stress cardiomyopathy [Recovering/Resolving]
  - Myocarditis [Recovering/Resolving]
  - Hypokalaemia [Recovered/Resolved]
  - Neutropenia [Unknown]
  - Drug hypersensitivity [Unknown]
